FAERS Safety Report 7554574-2 (Version None)
Quarter: 2011Q2

REPORT INFORMATION
  Report Type: 
  Country: None (occurrence: None)
  Receive Date: 20110614
  Receipt Date: 20110614
  Transmission Date: 20111010
  Serious: Yes (Hospitalization)
  Sender: FDA-Public Use
  Company Number: None

PATIENT
  Sex: Male
  Weight: 75.1 kg

DRUGS (17)
  1. OMAPRAZOLE [Concomitant]
  2. CYCLOPHOSPHAMIDE [Suspect]
     Indication: BURKITT'S LYMPHOMA
     Dates: start: 20110425, end: 20110510
  3. METHOTREXATE [Suspect]
     Indication: BURKITT'S LYMPHOMA
     Dates: start: 20110425, end: 20110510
  4. DISKUS [Concomitant]
  5. LISINOPRIL [Concomitant]
  6. TOPROL-XL [Concomitant]
  7. ADVAIR DISKUS 100/50 [Concomitant]
  8. RITUXIMAB (R-CODOX-M) [Suspect]
     Indication: BURKITT'S LYMPHOMA
     Dates: start: 20110425, end: 20110510
  9. CYTARABINE [Suspect]
     Indication: BURKITT'S LYMPHOMA
     Dates: start: 20110531, end: 20110606
  10. VINCRISTINE [Suspect]
     Indication: BURKITT'S LYMPHOMA
     Dates: start: 20110425, end: 20110510
  11. DOXORUBICIN HCL [Suspect]
     Indication: BURKITT'S LYMPHOMA
     Dates: start: 20110425, end: 20110510
  12. IFOSFAMIDE [Suspect]
     Indication: BURKITT'S LYMPHOMA
     Dates: start: 20110531, end: 20110606
  13. ETOPOSIDE [Suspect]
     Indication: BURKITT'S LYMPHOMA
     Dates: start: 20110531, end: 20110606
  14. RITUXIMAB [Suspect]
     Indication: BURKITT'S LYMPHOMA
     Dates: start: 20110531, end: 20110606
  15. VALACYCLOVIR [Concomitant]
  16. METOCLOPRAMIDE [Concomitant]
  17. FLUCONAZOLE [Concomitant]

REACTIONS (4)
  - EJECTION FRACTION DECREASED [None]
  - DIASTOLIC DYSFUNCTION [None]
  - CONDITION AGGRAVATED [None]
  - PLEURITIC PAIN [None]
